FAERS Safety Report 6998598-2 (Version None)
Quarter: 2010Q3

REPORT INFORMATION
  Report Type: 
  Country: None (occurrence: None)
  Receive Date: 20100920
  Receipt Date: 20070814
  Transmission Date: 20110219
  Serious: Yes (Other)
  Sender: FDA-Public Use
  Company Number: US-ASTRAZENECA-2006UW23917

PATIENT
  Age: 15207 Day
  Sex: Female
  Weight: 56.7 kg

DRUGS (7)
  1. SEROQUEL [Suspect]
     Indication: INSOMNIA
     Dosage: 100 MG
     Route: 048
     Dates: start: 19970101
  2. SEROQUEL [Suspect]
     Dosage: 100 MG TO 200 MG
     Route: 048
     Dates: start: 19990427
  3. SEROQUEL [Suspect]
     Route: 048
     Dates: start: 20060915
  4. LAMACT [Concomitant]
  5. VALIUM [Concomitant]
  6. NHCO [Concomitant]
  7. SPIROBTIN [Concomitant]

REACTIONS (1)
  - PANCREATITIS [None]
